FAERS Safety Report 15641085 (Version 1)
Quarter: 2018Q4

REPORT INFORMATION
  Report Type: Spontaneous
  Country: JP (occurrence: JP)
  Receive Date: 20181120
  Receipt Date: 20181120
  Transmission Date: 20190205
  Serious: Yes (Other)
  Sender: FDA-Public Use
  Company Number: JP-SHIRE-JP201844510

PATIENT
  Age: 53 Year
  Sex: Male

DRUGS (1)
  1. ADVATE [Suspect]
     Active Substance: ANTIHEMOPHILIC FACTOR, HUMAN RECOMBINANT
     Indication: FACTOR VIII DEFICIENCY
     Dosage: 1000 IU(19 IU/KG), OTHER(EVERY 72 HRS)
     Route: 042

REACTIONS (2)
  - Pain in extremity [Recovered/Resolved]
  - Haemarthrosis [Recovered/Resolved]
